FAERS Safety Report 10551757 (Version 2)
Quarter: 2015Q1

REPORT INFORMATION
  Report Type: Spontaneous
  Country: FR (occurrence: FR)
  Receive Date: 20141029
  Receipt Date: 20150115
  Transmission Date: 20150720
  Serious: Yes (Death, Hospitalization, Other)
  Sender: FDA-Public Use
  Company Number: FR-GLAXOSMITHKLINE-FR2014GSK007904

PATIENT
  Age: 41 Year
  Sex: Male

DRUGS (16)
  1. VERSATIS [Concomitant]
     Active Substance: LIDOCAINE
  2. DOLIPRANE [Concomitant]
     Active Substance: ACETAMINOPHEN
  3. XATRAL SR [Concomitant]
     Active Substance: ALFUZOSIN
  4. NAROPEINE [Concomitant]
     Active Substance: ROPIVACAINE HYDROCHLORIDE
     Route: 037
  5. BACLOFENE [Concomitant]
     Active Substance: BACLOFEN
  6. MOVICOL [Concomitant]
     Active Substance: POLYETHYLENE GLYCOL 3350\POTASSIUM CHLORIDE\SODIUM BICARBONATE\SODIUM CHLORIDE
  7. MORPHINE [Concomitant]
     Active Substance: MORPHINE
     Route: 037
  8. LYSANXIA [Concomitant]
     Active Substance: PRAZEPAM
  9. INEXIUM [Concomitant]
     Active Substance: ESOMEPRAZOLE
  10. SPASFON [Concomitant]
     Active Substance: PHLOROGLUCINOL
  11. VALIUM [Concomitant]
     Active Substance: DIAZEPAM
  12. LOVENOX [Concomitant]
     Active Substance: ENOXAPARIN SODIUM
  13. VOTRIENT [Suspect]
     Active Substance: PAZOPANIB HYDROCHLORIDE
     Indication: CHEMOTHERAPY
     Dosage: 400 MG, BID
     Route: 048
     Dates: start: 20140124, end: 201408
  14. PRIALT [Concomitant]
     Active Substance: ZICONOTIDE ACETATE
     Route: 037
  15. ATARAX [Concomitant]
     Active Substance: HYDROXYZINE\HYDROXYZINE HYDROCHLORIDE
  16. OXYNORM [Concomitant]
     Active Substance: OXYCODONE HYDROCHLORIDE

REACTIONS (6)
  - Death [Fatal]
  - Cough [Unknown]
  - Pneumothorax [Recovered/Resolved]
  - Treatment failure [Unknown]
  - Central nervous system lesion [Unknown]
  - Pleural effusion [Unknown]

NARRATIVE: CASE EVENT DATE: 20140612
